FAERS Safety Report 15893432 (Version 1)
Quarter: 2019Q1

REPORT INFORMATION
  Report Type: Spontaneous
  Country: US (occurrence: US)
  Receive Date: 20190130
  Receipt Date: 20190130
  Transmission Date: 20190417
  Serious: No
  Sender: FDA-Public Use
  Company Number: US-ASTRAZENECA-2019SE15698

PATIENT
  Age: 9 Month
  Sex: Female

DRUGS (8)
  1. SYNAGIS [Suspect]
     Active Substance: PALIVIZUMAB
     Indication: PREMATURE BABY
     Route: 030
  2. FUROSEMIDE. [Concomitant]
     Active Substance: FUROSEMIDE
  3. SYNAGIS [Suspect]
     Active Substance: PALIVIZUMAB
     Indication: PREMATURE BABY
     Dosage: 0.87 ML, UNKNOWN
     Route: 030
     Dates: start: 20181218
  4. DIGOXIN. [Concomitant]
     Active Substance: DIGOXIN
  5. OXYGEN. [Concomitant]
     Active Substance: OXYGEN
     Dosage: AT NIGHT
  6. VITAMIN D [Concomitant]
     Active Substance: CHOLECALCIFEROL
  7. SYNAGIS [Suspect]
     Active Substance: PALIVIZUMAB
     Indication: DIGEORGE^S SYNDROME
     Dosage: 0.87 ML, UNKNOWN
     Route: 030
     Dates: start: 20181218
  8. SYNAGIS [Suspect]
     Active Substance: PALIVIZUMAB
     Indication: DIGEORGE^S SYNDROME
     Route: 030

REACTIONS (5)
  - Body temperature increased [Unknown]
  - Respiratory tract infection [Unknown]
  - Heart rate abnormal [Unknown]
  - Rhonchi [Unknown]
  - Respiration abnormal [Unknown]

NARRATIVE: CASE EVENT DATE: 20190115
